FAERS Safety Report 5917924-6 (Version None)
Quarter: 2008Q4

REPORT INFORMATION
  Report Type: 
  Country: None (occurrence: None)
  Receive Date: 20081009
  Receipt Date: 20080923
  Transmission Date: 20090506
  Serious: Yes (Disabling, Other)
  Sender: FDA-Public Use
  Company Number: MC200800455

PATIENT
  Age: 67 Year
  Sex: Male

DRUGS (5)
  1. ANGIOMAX [Suspect]
     Indication: THROMBOSIS
  2. ANGIOMAX [Suspect]
     Indication: THROMBOSIS PROPHYLAXIS
  3. HEPARIN [Concomitant]
  4. LOW MOLECULAR WEIGH HEPARIN [Concomitant]
  5. PROSTAGLANDIN E [Concomitant]

REACTIONS (3)
  - BLINDNESS CORTICAL [None]
  - CEREBRAL INFARCTION [None]
  - MENTAL DISORDER DUE TO A GENERAL MEDICAL CONDITION [None]
